FAERS Safety Report 9657735 (Version 3)
Quarter: 2013Q4

REPORT INFORMATION
  Report Type: Spontaneous
  Country: JP (occurrence: JP)
  Receive Date: 20131030
  Receipt Date: 20131126
  Transmission Date: 20140711
  Serious: Yes (Hospitalization)
  Sender: FDA-Public Use
  Company Number: JP-JNJFOC-20131015894

PATIENT
  Age: 69 Year
  Sex: Female

DRUGS (7)
  1. FINIBAX [Suspect]
     Indication: ENANTHEMA
     Dosage: TOOK FOR 3 DAYS
     Route: 042
     Dates: start: 20131018, end: 20131021
  2. FINIBAX [Suspect]
     Indication: PNEUMONIA
     Dosage: TOOK FOR 3 DAYS
     Route: 042
     Dates: start: 20131018, end: 20131021
  3. FINIBAX [Suspect]
     Indication: CHOLANGITIS
     Dosage: TOOK FOR 3 DAYS
     Route: 042
     Dates: start: 20131018, end: 20131021
  4. OXYCONTIN [Concomitant]
     Indication: CANCER PAIN
     Route: 048
     Dates: start: 20131016, end: 20131020
  5. ALDACTONE A [Concomitant]
     Indication: OEDEMA
     Route: 048
     Dates: start: 20131010, end: 20131021
  6. DIART [Concomitant]
     Indication: OEDEMA
     Route: 048
     Dates: start: 20131010, end: 20131021
  7. GASLON [Concomitant]
     Indication: GASTRITIS
     Route: 048
     Dates: start: 20131010, end: 20131021

REACTIONS (2)
  - Drug eruption [Recovering/Resolving]
  - Enanthema [Recovering/Resolving]
